FAERS Safety Report 19952524 (Version 2)
Quarter: 2021Q4

REPORT INFORMATION
  Report Type: Report from Study
  Country: JP (occurrence: JP)
  Receive Date: 20211013
  Receipt Date: 20211014
  Transmission Date: 20220303
  Serious: Yes (Hospitalization)
  Sender: FDA-Public Use
  Company Number: JP-UCBSA-2021048163

PATIENT
  Age: 69 Year
  Sex: Male
  Weight: 54.4 kg

DRUGS (8)
  1. BRIVARACETAM [Suspect]
     Active Substance: BRIVARACETAM
     Indication: Partial seizures
     Dosage: 100 MG PER DAY
     Route: 048
     Dates: start: 20200731
  2. LAMICTAL [Concomitant]
     Active Substance: LAMOTRIGINE
     Indication: Epilepsy
     Dosage: 200 MILLIGRAM, 2X/DAY (BID)
     Route: 048
     Dates: start: 20200125
  3. TEGRETOL [Concomitant]
     Active Substance: CARBAMAZEPINE
     Indication: Epilepsy
     Dosage: 200 MILLIGRAM, 2X/DAY (BID)
     Route: 048
     Dates: start: 20191116
  4. BETAMETHASONE\CALCIPOTRIENE [Concomitant]
     Active Substance: BETAMETHASONE\CALCIPOTRIENE
     Indication: Pruritus
     Dosage: UNK, ONCE DAILY (QD)
     Route: 003
     Dates: start: 20200105
  5. CLOBETASOL PROPIONATE [Concomitant]
     Active Substance: CLOBETASOL PROPIONATE
     Indication: Pruritus
     Dosage: UNK, 2X/DAY (BID)
     Route: 003
     Dates: start: 20200105
  6. SALICYLIC ACID [Concomitant]
     Active Substance: SALICYLIC ACID
     Indication: Dry skin
     Dosage: UNK, 2X/DAY (BID)
     Route: 003
     Dates: start: 20200105
  7. WHITE PETROLATUM [Concomitant]
     Active Substance: PETROLATUM
     Indication: Dry skin
     Dosage: UNK, 2X/DAY (BID)
     Route: 003
     Dates: start: 20200105
  8. ESFLURBIPROFEN\HERBALS [Concomitant]
     Active Substance: ESFLURBIPROFEN\HERBALS
     Indication: Arthralgia
     Dosage: 1 DOSAGE FORM, ONCE DAILY (QD)
     Route: 003
     Dates: start: 20210312

REACTIONS (1)
  - Cataract [Recovered/Resolved]

NARRATIVE: CASE EVENT DATE: 20210622
